FAERS Safety Report 9722660 (Version 1)
Quarter: 2013Q4

REPORT INFORMATION
  Report Type: Spontaneous
  Country: US (occurrence: US)
  Receive Date: 20131202
  Receipt Date: 20131202
  Transmission Date: 20140711
  Serious: No
  Sender: FDA-Public Use
  Company Number: US-PFIZER INC-2013339337

PATIENT
  Age: 44 Year
  Sex: Female
  Weight: 124.72 kg

DRUGS (9)
  1. XELJANZ [Suspect]
     Indication: RHEUMATOID ARTHRITIS
     Dosage: 5 MG, 2X/DAY
     Route: 048
  2. METHOTREXATE [Concomitant]
     Dosage: 2.5 MG, UNK
  3. FOLIC ACID [Concomitant]
     Dosage: UNK
  4. BENICAR HCT [Concomitant]
     Dosage: 40-12.5, UNK, UNK
  5. ETODOLAC [Concomitant]
     Dosage: 400 MG, UNK
  6. GABAPENTIN [Concomitant]
     Dosage: 100 MG, UNK
  7. ATENOLOL [Concomitant]
     Dosage: 50 MG, UNK
  8. SUCRALFATE [Concomitant]
     Dosage: 1 G, UNK
  9. NEXIUM [Concomitant]
     Dosage: 40 MG, UNK

REACTIONS (1)
  - Pain [Unknown]
